FAERS Safety Report 9392764 (Version 1)
Quarter: 2013Q3

REPORT INFORMATION
  Report Type: Spontaneous
  Country: US (occurrence: US)
  Receive Date: 20130710
  Receipt Date: 20130710
  Transmission Date: 20140515
  Serious: No
  Sender: FDA-Public Use
  Company Number: US-009507513-1307USA004956

PATIENT
  Sex: 0

DRUGS (3)
  1. NEXPLANON [Suspect]
     Indication: CONTRACEPTION
     Dosage: 3 YEARS
     Route: 063
     Dates: start: 20130320
  2. OXYCODONE [Concomitant]
     Route: 063
  3. VITAMINS (UNSPECIFIED) [Concomitant]
     Route: 063

REACTIONS (2)
  - Feeding disorder neonatal [Unknown]
  - Exposure during breast feeding [Unknown]
